FAERS Safety Report 20687985 (Version 1)
Quarter: 2022Q2

REPORT INFORMATION
  Report Type: Report from Study
  Country: DE (occurrence: DE)
  Receive Date: 20220408
  Receipt Date: 20220408
  Transmission Date: 20220721
  Serious: Yes (Hospitalization, Other)
  Sender: FDA-Public Use
  Company Number: DE-BRISTOL-MYERS SQUIBB COMPANY-2022-010231

PATIENT
  Sex: Male

DRUGS (5)
  1. IPILIMUMAB [Suspect]
     Active Substance: IPILIMUMAB
     Indication: Small cell lung cancer metastatic
  2. NIVOLUMAB [Suspect]
     Active Substance: NIVOLUMAB
     Indication: Small cell lung cancer metastatic
     Dosage: DOSE : SEE DESCRIBE EVENTS FIELD;     FREQ : SEE DESCRIBE EVENTS FIELD
     Dates: start: 202112
  3. PACLITAXEL [Suspect]
     Active Substance: PACLITAXEL
     Indication: Small cell lung cancer metastatic
  4. CARBOPLATIN [Suspect]
     Active Substance: CARBOPLATIN
     Indication: Small cell lung cancer metastatic
  5. VINORELBINE [Concomitant]
     Active Substance: VINORELBINE TARTRATE

REACTIONS (3)
  - Malignant neoplasm progression [Unknown]
  - Dizziness [Unknown]
  - Hypersensitivity [Unknown]
